FAERS Safety Report 10217822 (Version 1)
Quarter: 2014Q2

REPORT INFORMATION
  Report Type: Report from Study
  Country: CA (occurrence: CA)
  Receive Date: 20140604
  Receipt Date: 20140604
  Transmission Date: 20141212
  Serious: Yes (Death, Hospitalization)
  Sender: FDA-Public Use
  Company Number: CA-JNJFOC-20140520134

PATIENT
  Sex: Male

DRUGS (4)
  1. TYLENOL [Suspect]
     Indication: PRODUCT USED FOR UNKNOWN INDICATION
     Route: 048
     Dates: start: 20050721, end: 20050722
  2. CODEINE [Concomitant]
     Indication: PRODUCT USED FOR UNKNOWN INDICATION
     Route: 048
  3. CAFFEINE [Concomitant]
     Indication: PRODUCT USED FOR UNKNOWN INDICATION
     Route: 048
  4. ETHANOL [Concomitant]
     Indication: PRODUCT USED FOR UNKNOWN INDICATION
     Route: 048

REACTIONS (8)
  - Toxicity to various agents [Fatal]
  - Acute hepatic failure [Fatal]
  - Metabolic acidosis [Fatal]
  - Upper gastrointestinal haemorrhage [Fatal]
  - Coagulopathy [Fatal]
  - Respiratory failure [Fatal]
  - Pneumonia aspiration [Fatal]
  - Renal failure acute [Fatal]
